FAERS Safety Report 8564561-3 (Version None)
Quarter: 2012Q3

REPORT INFORMATION
  Report Type: 
  Country: None (occurrence: None)
  Receive Date: 20120803
  Receipt Date: 20120730
  Transmission Date: 20120928
  Serious: Yes (Death)
  Sender: FDA-Public Use
  Company Number: US-JNJFOC-20120800481

PATIENT
  Sex: Female
  Weight: 81.65 kg

DRUGS (3)
  1. RISPERDAL [Suspect]
     Indication: DEMENTIA
     Route: 048
     Dates: start: 20080101, end: 20080506
  2. HEART MEDICATION (UNKNOWN) [Concomitant]
     Indication: CARDIAC DISORDER
     Route: 065
  3. NITROGLYCERIN [Concomitant]
     Indication: CARDIAC DISORDER
     Route: 062

REACTIONS (1)
  - MYOCARDIAL INFARCTION [None]
